FAERS Safety Report 20611192 (Version 1)
Quarter: 2022Q1

REPORT INFORMATION
  Report Type: Spontaneous
  Country: US (occurrence: US)
  Receive Date: 20220318
  Receipt Date: 20220318
  Transmission Date: 20220423
  Serious: Yes (Life-Threatening, Hospitalization)
  Sender: FDA-Public Use
  Company Number: US-MYLANLABS-2022M1019831

PATIENT
  Age: 80 Year
  Sex: Female

DRUGS (6)
  1. SODIUM NITROPRUSSIDE [Suspect]
     Active Substance: SODIUM NITROPRUSSIDE
     Indication: Cardiogenic shock
     Dosage: UNK, ADMINISTERED AS DRIPS
     Route: 065
     Dates: start: 20210215
  2. DOBUTAMINE [Suspect]
     Active Substance: DOBUTAMINE HYDROCHLORIDE
     Indication: Cardiogenic shock
     Dosage: UNK, ADMINISTERED AS DRIPS
     Route: 065
     Dates: start: 20210215
  3. BUMETANIDE [Suspect]
     Active Substance: BUMETANIDE
     Indication: Cardiogenic shock
     Dosage: UNK, ADMINISTERED AS DRIPS
     Route: 065
     Dates: start: 20210215
  4. RANITIDINE [Concomitant]
     Active Substance: RANITIDINE
     Indication: Product used for unknown indication
     Dosage: UNK
     Route: 065
  5. CHOLECALCIFEROL [Concomitant]
     Active Substance: CHOLECALCIFEROL
     Indication: Product used for unknown indication
     Dosage: UNK
     Route: 065
  6. FISH OIL [Concomitant]
     Active Substance: FISH OIL
     Indication: Product used for unknown indication
     Dosage: UNK
     Route: 065

REACTIONS (1)
  - Drug ineffective [Unknown]
